FAERS Safety Report 7730138-2 (Version None)
Quarter: 2011Q3

REPORT INFORMATION
  Report Type: 
  Country: None (occurrence: None)
  Receive Date: 20110906
  Receipt Date: 20110901
  Transmission Date: 20111222
  Serious: Yes (Other)
  Sender: FDA-Public Use
  Company Number: US-PFIZER INC-2011204401

PATIENT
  Sex: Female

DRUGS (3)
  1. LITHIUM [Suspect]
     Dosage: UNK
  2. PROZAC [Suspect]
     Dosage: UNK
  3. GEODON [Suspect]
     Dosage: UNK

REACTIONS (5)
  - TREMOR [None]
  - STRESS [None]
  - MOOD SWINGS [None]
  - BIPOLAR DISORDER [None]
  - PSYCHIATRIC SYMPTOM [None]
